FAERS Safety Report 7772088-1 (Version None)
Quarter: 2011Q3

REPORT INFORMATION
  Report Type: 
  Country: None (occurrence: None)
  Receive Date: 20110922
  Receipt Date: 20101223
  Transmission Date: 20111222
  Serious: Yes (Hospitalization)
  Sender: FDA-Public Use
  Company Number: US-ASTRAZENECA-2010SE60809

PATIENT
  Age: 25 Year
  Sex: Male
  Weight: 90.7 kg

DRUGS (4)
  1. PENICILLIN [Concomitant]
     Indication: INFECTION
  2. SEROQUEL XR [Suspect]
     Indication: SCHIZOPHRENIA
     Route: 048
     Dates: start: 20090101, end: 20101221
  3. HALDOL [Concomitant]
     Indication: SCHIZOPHRENIA
  4. COGENTIN [Concomitant]
     Indication: SCHIZOPHRENIA

REACTIONS (6)
  - PSYCHOTIC DISORDER [None]
  - OVERDOSE [None]
  - NAUSEA [None]
  - RESTLESSNESS [None]
  - VOMITING [None]
  - PARALYSIS [None]
